FAERS Safety Report 8185773-7 (Version None)
Quarter: 2012Q1

REPORT INFORMATION
  Report Type: 
  Country: None (occurrence: None)
  Receive Date: 20120305
  Receipt Date: 20120305
  Transmission Date: 20120608
  Serious: Yes (Hospitalization, Other)
  Sender: FDA-Public Use
  Company Number: DE-ABBOTT-12P-062-0909951-00

PATIENT
  Sex: Male

DRUGS (2)
  1. HUMIRA [Suspect]
     Indication: PRODUCT USED FOR UNKNOWN INDICATION
     Route: 058
     Dates: start: 20110228, end: 20110228
  2. HUMIRA [Suspect]
     Route: 058
     Dates: start: 20110101

REACTIONS (7)
  - GENERAL PHYSICAL HEALTH DETERIORATION [None]
  - MELAENA [None]
  - BONE PAIN [None]
  - ABNORMAL LOSS OF WEIGHT [None]
  - DYSPNOEA AT REST [None]
  - ABDOMINAL PAIN LOWER [None]
  - GASTRITIS [None]
